FAERS Safety Report 21907464 (Version 1)
Quarter: 2023Q1

REPORT INFORMATION
  Report Type: Spontaneous
  Country: US (occurrence: None)
  Receive Date: 20230124
  Receipt Date: 20230124
  Transmission Date: 20230417
  Serious: No
  Sender: FDA-Public Use
  Company Number: None

PATIENT
  Sex: Male

DRUGS (1)
  1. TREMFYA [Suspect]
     Active Substance: GUSELKUMAB
     Indication: Psoriasis
     Dosage: 100MG EVERY 8 WEEKS SUB-Q?
     Route: 058
     Dates: start: 202208

REACTIONS (4)
  - Device malfunction [None]
  - Drug dose omission by device [None]
  - Needle issue [None]
  - Device breakage [None]
